FAERS Safety Report 25328907 (Version 1)
Quarter: 2025Q2

REPORT INFORMATION
  Report Type: Report from Study
  Country: CA (occurrence: CA)
  Receive Date: 20250519
  Receipt Date: 20250519
  Transmission Date: 20250717
  Serious: Yes (Other)
  Sender: TAKEDA
  Company Number: CA-TAKEDA-2025TUS045453

PATIENT
  Sex: Female

DRUGS (12)
  1. VEDOLIZUMAB [Suspect]
     Active Substance: VEDOLIZUMAB
     Indication: Colitis ulcerative
  2. ESOMEPRAZOLE [Concomitant]
     Active Substance: ESOMEPRAZOLE
  3. ZENHALE [Concomitant]
     Active Substance: FORMOTEROL FUMARATE\MOMETASONE FUROATE
  4. DETROL [Concomitant]
     Active Substance: TOLTERODINE TARTRATE
  5. MYRBETRIQ [Concomitant]
     Active Substance: MIRABEGRON
  6. RUPATADINE FUMARATE [Concomitant]
     Active Substance: RUPATADINE FUMARATE
  7. CANDESARTAN [Concomitant]
     Active Substance: CANDESARTAN
  8. ALMOTRIPTAN [Concomitant]
     Active Substance: ALMOTRIPTAN
  9. Ipravent [Concomitant]
  10. Rosiver [Concomitant]
  11. SALICYLIC ACID [Concomitant]
     Active Substance: SALICYLIC ACID
  12. LATANOPROST [Concomitant]
     Active Substance: LATANOPROST

REACTIONS (1)
  - Glaucoma [Unknown]
